FAERS Safety Report 5080032-3 (Version None)
Quarter: 2006Q3

REPORT INFORMATION
  Report Type: 
  Country: None (occurrence: None)
  Receive Date: 20060815
  Receipt Date: 20060727
  Transmission Date: 20061208
  Serious: Yes (Disabling)
  Sender: FDA-Public Use
  Company Number: 2006AC01394

PATIENT
  Age: 30509 Day
  Sex: Female
  Weight: 66 kg

DRUGS (6)
  1. NEXIUM [Suspect]
     Indication: DYSPEPSIA
     Dosage: PREVIOUS USE OF NEXIUM
     Route: 048
     Dates: start: 20060112
  2. NEXIUM [Suspect]
     Route: 048
     Dates: start: 20060313, end: 20060601
  3. NIFEDIPINE [Suspect]
     Indication: CARDIAC DISORDER
     Route: 048
     Dates: start: 20000101
  4. METOPROLOL TARTRATE [Concomitant]
     Indication: CARDIAC DISORDER
     Route: 048
     Dates: start: 19980101
  5. QUINAPRIL [Concomitant]
     Indication: CARDIAC DISORDER
     Route: 048
     Dates: start: 19980101
  6. ASCAL CARDIO [Concomitant]
     Indication: CARDIAC DISORDER
     Dosage: BOLUS
     Dates: start: 20040101

REACTIONS (1)
  - MUSCULOSKELETAL DISORDER [None]
